FAERS Safety Report 8265586-8 (Version None)
Quarter: 2012Q2

REPORT INFORMATION
  Report Type: 
  Country: None (occurrence: None)
  Receive Date: 20120406
  Receipt Date: 20120329
  Transmission Date: 20120825
  Serious: No
  Sender: FDA-Public Use
  Company Number: US-PFIZER INC-2012071385

PATIENT
  Sex: Female
  Weight: 59 kg

DRUGS (3)
  1. PRISTIQ [Suspect]
     Indication: DEPRESSION
     Dosage: 50 MG, 2X/DAY
     Route: 048
     Dates: start: 20120301, end: 20120316
  2. EFFEXOR XR [Concomitant]
     Dosage: UNK
  3. GEODON [Concomitant]
     Dosage: UNK

REACTIONS (2)
  - DRUG PRESCRIBING ERROR [None]
  - MALAISE [None]
